FAERS Safety Report 21907724 (Version 2)
Quarter: 2023Q1

REPORT INFORMATION
  Report Type: Spontaneous
  Country: IT (occurrence: IT)
  Receive Date: 20230125
  Receipt Date: 20230208
  Transmission Date: 20230418
  Serious: Yes (Death, Other)
  Sender: FDA-Public Use
  Company Number: IT-MINISAL02-903015

PATIENT
  Age: 74 Year
  Sex: Female

DRUGS (5)
  1. LEVETIRACETAM [Suspect]
     Active Substance: LEVETIRACETAM
     Indication: Product used for unknown indication
     Dosage: 750 MILLIGRAM, BID
     Route: 065
  2. TEMOZOLOMIDE [Suspect]
     Active Substance: TEMOZOLOMIDE
     Indication: Glioblastoma
     Dosage: UNK
     Route: 065
     Dates: start: 20220203, end: 20220303
  3. NALOXONE HYDROCHLORIDE\OXYCODONE HYDROCHLORIDE [Concomitant]
     Active Substance: NALOXONE HYDROCHLORIDE\OXYCODONE HYDROCHLORIDE
     Indication: Product used for unknown indication
     Dosage: 5 MILLIGRAM, BID, I CP ORE 8 E 1 CP ORE 20
     Route: 065
  4. Candersartan + Idroclorotiazide [Concomitant]
     Indication: Product used for unknown indication
     Dosage: 16 MG + 12,5 MG, UNK
     Route: 065
  5. Levotoroxina [Concomitant]
     Indication: Product used for unknown indication
     Dosage: 100 MG, (5 GIORNI) E 75 MG (2 GIORNI)
     Route: 065

REACTIONS (3)
  - Haematotoxicity [Fatal]
  - Neutropenia [Fatal]
  - Thrombocytopenia [Fatal]

NARRATIVE: CASE EVENT DATE: 20220302
